FAERS Safety Report 19306314 (Version 1)
Quarter: 2021Q2

REPORT INFORMATION
  Report Type: Spontaneous
  Country: PL (occurrence: PL)
  Receive Date: 20210526
  Receipt Date: 20210526
  Transmission Date: 20210717
  Serious: Yes (Other)
  Sender: FDA-Public Use
  Company Number: NVSC2021PL110234

PATIENT
  Age: 74 Year
  Sex: Female

DRUGS (2)
  1. RYDAPT [Suspect]
     Active Substance: MIDOSTAURIN
     Dosage: 100 MG, PER DAY (2X50 MG/DAY)
     Route: 065
  2. RYDAPT [Suspect]
     Active Substance: MIDOSTAURIN
     Indication: SYSTEMIC MASTOCYTOSIS
     Dosage: 200 MG, PER DAY (2X100 MG/DAY)
     Route: 065

REACTIONS (2)
  - Hyperglycaemia [Unknown]
  - Type 1 diabetes mellitus [Unknown]
